FAERS Safety Report 5080787-8 (Version None)
Quarter: 2006Q3

REPORT INFORMATION
  Report Type: 
  Country: None (occurrence: None)
  Receive Date: 20060809
  Receipt Date: 20060801
  Transmission Date: 20061208
  Serious: Yes (Other)
  Sender: FDA-Public Use
  Company Number: GXKR2006GB04425

PATIENT
  Sex: Female

DRUGS (3)
  1. OMEPRAZOLE [Suspect]
     Indication: BARRETT'S OESOPHAGUS
  2. ESOMEPRAZOLE(ESOMEPRAZOLE) [Suspect]
     Indication: BARRETT'S OESOPHAGUS
  3. RABEPRAZOLE SODIUM [Concomitant]

REACTIONS (3)
  - DYSPNOEA [None]
  - OEDEMA PERIPHERAL [None]
  - WEIGHT INCREASED [None]
